FAERS Safety Report 8393328-4 (Version None)
Quarter: 2012Q2

REPORT INFORMATION
  Report Type: 
  Country: None (occurrence: None)
  Receive Date: 20120529
  Receipt Date: 20120516
  Transmission Date: 20120825
  Serious: No
  Sender: FDA-Public Use
  Company Number: US-ENDO PHARMACEUTICALS INC.-OPIR20120088

PATIENT
  Sex: Male

DRUGS (2)
  1. OPANA ER [Concomitant]
     Indication: PAIN
     Route: 048
     Dates: start: 20120101
  2. OPANA [Suspect]
     Indication: BREAKTHROUGH PAIN
     Route: 048
     Dates: start: 20120101

REACTIONS (7)
  - NEUROPATHY PERIPHERAL [None]
  - CONDITION AGGRAVATED [None]
  - CONFUSIONAL STATE [None]
  - FEELING ABNORMAL [None]
  - TINNITUS [None]
  - POOR PERIPHERAL CIRCULATION [None]
  - DRUG INEFFECTIVE [None]
